FAERS Safety Report 10222256 (Version 1)
Quarter: 2014Q2

REPORT INFORMATION
  Report Type: Spontaneous
  Country: IT (occurrence: IT)
  Receive Date: 20140606
  Receipt Date: 20140606
  Transmission Date: 20141212
  Serious: Yes (Other)
  Sender: FDA-Public Use
  Company Number: IT-GLAXOSMITHKLINE-B0998753A

PATIENT
  Age: 70 Year
  Sex: Male

DRUGS (4)
  1. VOTRIENT [Suspect]
     Indication: METASTATIC RENAL CELL CARCINOMA
     Dosage: 600MG PER DAY
     Route: 065
  2. XARELTO [Concomitant]
  3. COUMADIN [Concomitant]
  4. UNSPECIFIED DRUGS [Concomitant]

REACTIONS (4)
  - Polycythaemia [Recovered/Resolved]
  - Haemoglobin increased [Recovered/Resolved]
  - Haematocrit increased [Recovered/Resolved]
  - Proteinuria [Recovered/Resolved]
